FAERS Safety Report 18307658 (Version 1)
Quarter: 2020Q3

REPORT INFORMATION
  Report Type: Spontaneous
  Country: DE (occurrence: DE)
  Receive Date: 20200924
  Receipt Date: 20200924
  Transmission Date: 20201103
  Serious: Yes (Hospitalization, Other)
  Sender: FDA-Public Use
  Company Number: DE-MYLANLABS-2020M1080125

PATIENT
  Age: 16 Year
  Sex: Female
  Weight: 64 kg

DRUGS (5)
  1. LEVOMEPROMAZIN                     /00038601/ [Concomitant]
     Active Substance: LEVOMEPROMAZINE
     Indication: BORDERLINE PERSONALITY DISORDER
     Dosage: UNK
     Route: 048
  2. CITALOPRAM [Concomitant]
     Active Substance: CITALOPRAM HYDROBROMIDE
     Indication: BORDERLINE PERSONALITY DISORDER
     Dosage: 1 DOSAGE FORM, QD(DAILY DOSE: 1 DF DOSAGE FORM EVERY DAYS)
     Route: 048
  3. L?THYROXIN                         /00068001/ [Concomitant]
     Active Substance: LEVOTHYROXINE
     Indication: HYPOTHYROIDISM
     Dosage: 0.5 DOSAGE FORM, QD(DAILY DOSE: 0.5 DF DOSAGE FORM EVERY DAYS)
     Route: 048
  4. PARACETAMOL [Suspect]
     Active Substance: ACETAMINOPHEN
     Indication: PRODUCT USED FOR UNKNOWN INDICATION
     Dosage: 4 DOSAGE FORM, QD(DAILY DOSE: 4 DF DOSAGE FORM EVERY DAYS)
     Route: 048
     Dates: start: 20191001
  5. RISPERIDON [Concomitant]
     Active Substance: RISPERIDONE
     Indication: BORDERLINE PERSONALITY DISORDER
     Dosage: 1 DOSAGE FORM, QD(DAILY DOSE: 1 DF DOSAGE FORM EVERY DAYS)
     Route: 048

REACTIONS (3)
  - Intentional overdose [Unknown]
  - Toxicity to various agents [Unknown]
  - Intentional self-injury [Unknown]

NARRATIVE: CASE EVENT DATE: 20191001
